FAERS Safety Report 24032422 (Version 2)
Quarter: 2024Q3

REPORT INFORMATION
  Report Type: Spontaneous
  Country: US (occurrence: US)
  Receive Date: 20240701
  Receipt Date: 20240725
  Transmission Date: 20241016
  Serious: No
  Sender: TEIKOKU
  Company Number: US-TPU-TPU-2024-00248

PATIENT
  Sex: Female

DRUGS (2)
  1. LIDOCAINE [Suspect]
     Active Substance: LIDOCAINE
     Indication: Back pain
     Dates: start: 2019
  2. LIDOCAINE [Suspect]
     Active Substance: LIDOCAINE
     Indication: Arthritis

REACTIONS (3)
  - Road traffic accident [Unknown]
  - Multiple fractures [Unknown]
  - Prescription drug used without a prescription [Unknown]
